FAERS Safety Report 25819575 (Version 1)
Quarter: 2025Q3

REPORT INFORMATION
  Report Type: Spontaneous
  Country: GB (occurrence: GB)
  Receive Date: 20250918
  Receipt Date: 20250918
  Transmission Date: 20251020
  Serious: Yes (Other)
  Sender: PFIZER
  Company Number: GB-MHRA-EMIS-4187-ff7de330-6a75-4701-b711-79ec00c8982e

PATIENT
  Age: 51 Year
  Sex: Female
  Weight: 92 kg

DRUGS (2)
  1. MEDROXYPROGESTERONE\MEDROXYPROGESTERONE ACETATE [Suspect]
     Active Substance: MEDROXYPROGESTERONE\MEDROXYPROGESTERONE ACETATE
     Indication: Contraception
     Dosage: 0.65 ML, 13 WEEKLY
     Dates: start: 20200331, end: 20250911
  2. METOCLOPRAMIDE [Concomitant]
     Active Substance: METOCLOPRAMIDE
     Indication: Nausea
     Dosage: UNK UNK, 3X/DAY
     Dates: start: 20250714, end: 20250812

REACTIONS (1)
  - Intracranial meningioma malignant [Recovering/Resolving]

NARRATIVE: CASE EVENT DATE: 20240911
